FAERS Safety Report 20106959 (Version 1)
Quarter: 2021Q4

REPORT INFORMATION
  Report Type: Spontaneous
  Country: US (occurrence: US)
  Receive Date: 20211124
  Receipt Date: 20211124
  Transmission Date: 20220303
  Serious: Yes (Life-Threatening, Hospitalization)
  Sender: FDA-Public Use
  Company Number: US-STRIDES ARCOLAB LIMITED-2021SP030143

PATIENT
  Age: 6 Decade
  Sex: Female

DRUGS (8)
  1. LIDOCAINE [Suspect]
     Active Substance: LIDOCAINE
     Indication: Local anaesthesia
     Dosage: 2 MILLILITER
     Route: 061
  2. LIDOCAINE [Suspect]
     Active Substance: LIDOCAINE
     Dosage: 200 MILLIGRAM, A LOCAL INFILTRATION OF 1% LIDOCAINE 20ML (200MG) INJECTION
     Route: 065
  3. LIDOCAINE [Suspect]
     Active Substance: LIDOCAINE
     Dosage: UNK, LIDOCAINE WAS GIVEN WITH FREQUENT ASPIRATION AND INCREMENTAL INJECTION (ROA:LOCAL INFILTRATION)
     Route: 065
  4. LIDOCAINE [Suspect]
     Active Substance: LIDOCAINE
     Dosage: 3 MILLILITER (TEST DOSE) WITH EPINEPHRINE
     Route: 008
  5. BUPIVACAINE [Suspect]
     Active Substance: BUPIVACAINE
     Indication: Local anaesthesia
     Dosage: 8 MILLILITER
     Route: 008
  6. IOHEXOL [Concomitant]
     Active Substance: IOHEXOL
     Indication: Product used for unknown indication
     Dosage: 1 MILLILITER, 1 ML OF 180 MG IODINE/ ML
     Route: 008
  7. EPINEPHRINE [Concomitant]
     Active Substance: EPINEPHRINE
     Indication: Circulatory collapse
     Dosage: 0.2 MICROGRAM/KILOGRAM PER MIN
     Route: 065
  8. EPINEPHRINE [Concomitant]
     Active Substance: EPINEPHRINE
     Dosage: UNK (ALONG WITH LIDOCAINE)
     Route: 008

REACTIONS (4)
  - Respiratory failure [Unknown]
  - Bundle branch block left [Recovered/Resolved]
  - Local anaesthetic systemic toxicity [Unknown]
  - Circulatory collapse [Recovered/Resolved]
